FAERS Safety Report 8623188-5 (Version None)
Quarter: 2012Q3

REPORT INFORMATION
  Report Type: 
  Country: None (occurrence: None)
  Receive Date: 20120827
  Receipt Date: 20120817
  Transmission Date: 20120928
  Serious: Yes (Other)
  Sender: FDA-Public Use
  Company Number: DK-JNJFOC-20120809111

PATIENT
  Sex: Female

DRUGS (7)
  1. AN UNKNOWN MEDICATION [Suspect]
     Indication: CONSTIPATION
     Route: 065
  2. IMODIUM [Suspect]
     Route: 065
  3. MAGNESIUM  OXIDE [Suspect]
     Indication: CONSTIPATION
     Route: 065
     Dates: start: 20120101, end: 20120101
  4. AN UNKNOWN MEDICATION [Suspect]
     Route: 065
  5. KLYX [Suspect]
     Indication: CONSTIPATION
     Route: 054
     Dates: start: 20120101, end: 20120101
  6. IMODIUM [Suspect]
     Indication: DIARRHOEA
     Route: 065
     Dates: start: 20120705, end: 20120101
  7. BIFIFORM [Suspect]
     Indication: DIARRHOEA
     Route: 065
     Dates: start: 20120625, end: 20120630

REACTIONS (3)
  - GASTROINTESTINAL DISORDER [None]
  - HAEMORRHOIDS [None]
  - ABSCESS INTESTINAL [None]
